FAERS Safety Report 4839175-9 (Version None)
Quarter: 2005Q4

REPORT INFORMATION
  Report Type: 
  Country: None (occurrence: None)
  Receive Date: 20051129
  Receipt Date: 20050808
  Transmission Date: 20060501
  Serious: Yes (Disabling)
  Sender: FDA-Public Use
  Company Number: PHNR2005AU01210

PATIENT
  Sex: Female

DRUGS (4)
  1. COMBIPATCH [Suspect]
     Dosage: 50/250, TWICE WEEKLY
     Dates: start: 20050801, end: 20050818
  2. OROXINE [Concomitant]
  3. SERETIDE [Concomitant]
  4. VENTOLIN [Concomitant]

REACTIONS (5)
  - HEADACHE [None]
  - IRRITABILITY [None]
  - MEDICATION ERROR [None]
  - METRORRHAGIA [None]
  - MOOD ALTERED [None]
